FAERS Safety Report 11290611 (Version 1)
Quarter: 2015Q3

REPORT INFORMATION
  Report Type: Spontaneous
  Country: US (occurrence: US)
  Receive Date: 20150722
  Receipt Date: 20150722
  Transmission Date: 20151125
  Serious: Yes (Hospitalization, Other)
  Sender: FDA-Public Use
  Company Number: US-AUROBINDO-AUR-APL-2015-06237

PATIENT
  Age: 41 Year
  Sex: Female
  Weight: 84 kg

DRUGS (8)
  1. CARISOPRODOL 350 MG [Suspect]
     Active Substance: CARISOPRODOL
     Indication: PRODUCT USED FOR UNKNOWN INDICATION
     Dosage: 350 MG, 3 TIMES A DAY
     Route: 065
  2. DULOXETINE. [Suspect]
     Active Substance: DULOXETINE
     Indication: DEPRESSION
     Dosage: 120 MG, AT BEDTIME
     Route: 065
  3. CYCLOBENZAPRINE [Suspect]
     Active Substance: CYCLOBENZAPRINE
     Indication: MUSCLE SPASMS
     Dosage: 5-10 MG AT BEDTIME
     Route: 065
  4. AMITRIPTYLINE [Suspect]
     Active Substance: AMITRIPTYLINE
     Indication: PRODUCT USED FOR UNKNOWN INDICATION
     Dosage: 25 MG, AT NIGHTTIME
     Route: 065
  5. AMITRIPTYLINE [Suspect]
     Active Substance: AMITRIPTYLINE
     Dosage: 50 MG, DAILY
     Route: 065
  6. CETIRIZINE [Concomitant]
     Active Substance: CETIRIZINE HYDROCHLORIDE
     Indication: PRODUCT USED FOR UNKNOWN INDICATION
     Dosage: 10 MG, DAILY
     Route: 065
  7. GABAPENTIN. [Concomitant]
     Active Substance: GABAPENTIN
     Indication: PRODUCT USED FOR UNKNOWN INDICATION
     Dosage: 800 MG, 3 TIMES A DAY
     Route: 065
  8. TRAMADOL 50MG [Suspect]
     Active Substance: TRAMADOL
     Indication: PAIN
     Dosage: 50 MG, FOUR TIMES/DAY
     Route: 065

REACTIONS (13)
  - Akathisia [Recovered/Resolved]
  - Hoffmann^s sign [Recovered/Resolved]
  - Condition aggravated [Recovering/Resolving]
  - Hyperreflexia [Recovering/Resolving]
  - Tremor [Recovered/Resolved]
  - Muscle twitching [Recovering/Resolving]
  - Serotonin syndrome [Recovering/Resolving]
  - Dry mouth [Recovering/Resolving]
  - Mydriasis [Recovering/Resolving]
  - Clonus [Recovering/Resolving]
  - Neck pain [Recovering/Resolving]
  - Insomnia [Recovering/Resolving]
  - Mucosal dryness [Recovering/Resolving]
